FAERS Safety Report 5578380-3 (Version None)
Quarter: 2007Q4

REPORT INFORMATION
  Report Type: 
  Country: None (occurrence: None)
  Receive Date: 20071231
  Receipt Date: 20071221
  Transmission Date: 20080405
  Serious: Yes (Other)
  Sender: FDA-Public Use
  Company Number: US-PFIZER INC-2007108324

PATIENT
  Age: 80 Year
  Sex: Female

DRUGS (1)
  1. LIPITOR [Suspect]
     Dates: start: 20000101, end: 20070101

REACTIONS (6)
  - ABASIA [None]
  - EMOTIONAL DISORDER [None]
  - FEAR [None]
  - FEAR OF FALLING [None]
  - FEELING ABNORMAL [None]
  - SENSORY DISTURBANCE [None]
